FAERS Safety Report 10981927 (Version 1)
Quarter: 2015Q2

REPORT INFORMATION
  Report Type: Report from Study
  Country: BR (occurrence: BR)
  Receive Date: 20150402
  Receipt Date: 20150402
  Transmission Date: 20150821
  Serious: Yes (Death, Other)
  Sender: FDA-Public Use
  Company Number: PHHY2015BR039129

PATIENT
  Sex: Male
  Weight: 47 kg

DRUGS (1)
  1. EXJADE [Suspect]
     Active Substance: DEFERASIROX
     Indication: ANAEMIA
     Dosage: 1 DF, EACH OTHER DAY
     Route: 048
     Dates: end: 201401

REACTIONS (7)
  - Weight decreased [Unknown]
  - Metastases to liver [Fatal]
  - Faecal vomiting [Unknown]
  - Metastases to peripheral vascular system [Fatal]
  - Multi-organ failure [Fatal]
  - Metastases to pancreas [Fatal]
  - Gastrointestinal neoplasm [Fatal]

NARRATIVE: CASE EVENT DATE: 2013
